FAERS Safety Report 5805756-9 (Version None)
Quarter: 2008Q3

REPORT INFORMATION
  Report Type: 
  Country: None (occurrence: None)
  Receive Date: 20080708
  Receipt Date: 20080708
  Transmission Date: 20090109
  Serious: No
  Sender: FDA-Public Use
  Company Number: None

PATIENT
  Age: 78 Year
  Sex: Male
  Weight: 79.8 kg

DRUGS (1)
  1. LISINOPRIL [Suspect]
     Dosage: 5 MG EVERYDAY PO
     Route: 048
     Dates: start: 20030408, end: 20071017

REACTIONS (4)
  - PRURITUS [None]
  - SWOLLEN TONGUE [None]
  - TREATMENT NONCOMPLIANCE [None]
  - URTICARIA [None]
